FAERS Safety Report 13339270 (Version 1)
Quarter: 2017Q1

REPORT INFORMATION
  Report Type: Spontaneous
  Country: CN (occurrence: CN)
  Receive Date: 20170315
  Receipt Date: 20170315
  Transmission Date: 20170428
  Serious: Yes (Hospitalization)
  Sender: FDA-Public Use
  Company Number: CN-PURDUE-GBR-2017-0044057

PATIENT
  Age: 56 Year
  Sex: Female
  Weight: 78 kg

DRUGS (1)
  1. MS CONTIN [Suspect]
     Active Substance: MORPHINE SULFATE
     Indication: ANALGESIC THERAPY
     Dosage: 60 MG, Q12H
     Route: 048
     Dates: start: 20170111, end: 20170114

REACTIONS (8)
  - Aphonia [Not Recovered/Not Resolved]
  - Somnolence [Recovering/Resolving]
  - Respiratory rate decreased [Recovered/Resolved]
  - Asthenia [Not Recovered/Not Resolved]
  - Depressed level of consciousness [Recovering/Resolving]
  - Miosis [Recovered/Resolved]
  - Hypopnoea [Recovered/Resolved]
  - Apnoea [Recovered/Resolved]

NARRATIVE: CASE EVENT DATE: 20170115
